FAERS Safety Report 10756265 (Version 2)
Quarter: 2015Q1

REPORT INFORMATION
  Report Type: Report from Study
  Country: ES (occurrence: ES)
  Receive Date: 20150202
  Receipt Date: 20150206
  Transmission Date: 20150721
  Serious: Yes (Other)
  Sender: FDA-Public Use
  Company Number: ES-ABBVIE-15P-144-1341431-00

PATIENT
  Age: 74 Year
  Sex: Female

DRUGS (3)
  1. LEVODOPA/CARBIDOPA [Suspect]
     Active Substance: CARBIDOPA\LEVODOPA
     Indication: PARKINSON^S DISEASE
     Route: 050
     Dates: start: 20110627
  2. HIDROCLOROTIAZIDE [Concomitant]
     Indication: HYPERTENSION
  3. CARDESARTAN [Concomitant]
     Indication: HYPERTENSION

REACTIONS (4)
  - Hypophagia [Not Recovered/Not Resolved]
  - Syncope [Not Recovered/Not Resolved]
  - Epilepsy [Not Recovered/Not Resolved]
  - Weight decreased [Not Recovered/Not Resolved]

NARRATIVE: CASE EVENT DATE: 201412
